FAERS Safety Report 7577793-8 (Version None)
Quarter: 2011Q2

REPORT INFORMATION
  Report Type: 
  Country: None (occurrence: None)
  Receive Date: 20110628
  Receipt Date: 20110614
  Transmission Date: 20111010
  Serious: Yes (Disabling, Other)
  Sender: FDA-Public Use
  Company Number: PHHY2011US39761

PATIENT
  Sex: Male

DRUGS (15)
  1. ASPIRIN [Concomitant]
     Dosage: 81 MG, UNK
  2. CALCIUM WITH VITAMIN D [Concomitant]
  3. VANIDENE [Concomitant]
  4. NEPTAZANE [Concomitant]
  5. ASPIRIN [Concomitant]
     Dosage: UNK
  6. VITAMIN TAB [Concomitant]
  7. SIMVASTATIN [Concomitant]
  8. TETRACYCLINE [Concomitant]
  9. RECLAST [Suspect]
     Indication: OSTEOPOROSIS
     Dosage: 5 MG, UNK
     Route: 042
     Dates: start: 20101116
  10. XALATAN [Concomitant]
  11. DOXACOR [Concomitant]
  12. METOPROLOL TARTRATE [Concomitant]
     Indication: HYPERTENSION
     Dosage: 25 MG, BID
     Route: 048
  13. ISORDIL [Concomitant]
  14. GABAPENTIN [Concomitant]
  15. ANTIHYPERTENSIVE DRUGS [Concomitant]
     Dosage: UNK

REACTIONS (6)
  - CONJUNCTIVITIS [None]
  - EYE INFLAMMATION [None]
  - VISION BLURRED [None]
  - EYE PAIN [None]
  - EYELID OEDEMA [None]
  - GLAUCOMA [None]
